FAERS Safety Report 17455767 (Version 1)
Quarter: 2020Q1

REPORT INFORMATION
  Report Type: Spontaneous
  Country: US (occurrence: US)
  Receive Date: 20200212
  Receipt Date: 20200212
  Transmission Date: 20200409
  Serious: No
  Sender: FDA-Public Use
  Company Number: None

PATIENT
  Age: 49 Year
  Sex: Female
  Weight: 77.11 kg

DRUGS (1)
  1. MYRBETRIQ [Suspect]
     Active Substance: MIRABEGRON
     Indication: HYPERTONIC BLADDER
     Dosage: ?          QUANTITY:25 SAMPLES;?
     Route: 048
     Dates: start: 20191015, end: 20191022

REACTIONS (2)
  - Nonspecific reaction [None]
  - Vertigo [None]

NARRATIVE: CASE EVENT DATE: 20191015
